FAERS Safety Report 6269180-X (Version None)
Quarter: 2009Q3

REPORT INFORMATION
  Report Type: 
  Country: None (occurrence: None)
  Receive Date: 20090715
  Receipt Date: 20090706
  Transmission Date: 20100115
  Serious: Yes (Disabling)
  Sender: FDA-Public Use
  Company Number: GB-PURDUE-USA-2009-0039102

PATIENT
  Age: 77 Year
  Sex: Male
  Weight: 90 kg

DRUGS (4)
  1. TRAMADOL HCL [Suspect]
     Indication: ARTHRALGIA
     Dosage: 300 MG, UNK
     Route: 048
     Dates: start: 20070305, end: 20070311
  2. DICLOFENAC [Concomitant]
     Indication: ARTHRALGIA
     Dosage: 50 MG, TID
     Route: 048
     Dates: start: 20070301, end: 20070305
  3. PREDNISOLONE [Concomitant]
     Indication: ARTHRALGIA
     Dosage: 30 MG, UNK
     Route: 048
     Dates: start: 20070305, end: 20070312
  4. OMEPRAZOLE [Concomitant]
     Dosage: 20 MG, UNK
     Dates: start: 20040101

REACTIONS (1)
  - MUSCULAR WEAKNESS [None]
